FAERS Safety Report 14517210 (Version 5)
Quarter: 2020Q3

REPORT INFORMATION
  Report Type: Report from Study
  Country: DE (occurrence: DE)
  Receive Date: 20180212
  Receipt Date: 20190509
  Transmission Date: 20201104
  Serious: Yes (Hospitalization, Disabling)
  Sender: FDA-Public Use
  Company Number: DE-ROCHE-2065099

PATIENT
  Age: 78 Year
  Sex: Female

DRUGS (2)
  1. IBANDRONIC ACID. [Suspect]
     Active Substance: IBANDRONIC ACID
     Indication: OSTEOPOROSIS
     Dosage: DAILY DOSE: 3 MG MILLIGRAM(S) EVERY 3 MONTH
     Route: 042
     Dates: start: 20071101, end: 201511
  2. RISEDRONATE SODIUM. [Suspect]
     Active Substance: RISEDRONATE SODIUM
     Indication: OSTEOPOROSIS
     Dosage: DAILY DOSE: 35 MG MILLIGRAM(S) EVERY WEEK?MOST RECENT DOSE ON 01/NOV/2007
     Route: 048
     Dates: start: 20040701, end: 20071101

REACTIONS (2)
  - Osteonecrosis of jaw [Recovered/Resolved with Sequelae]
  - Osteonecrosis [Recovered/Resolved with Sequelae]

NARRATIVE: CASE EVENT DATE: 20151101
